FAERS Safety Report 21426066 (Version 1)
Quarter: 2022Q4

REPORT INFORMATION
  Report Type: Spontaneous
  Country: DE (occurrence: DE)
  Receive Date: 20221008
  Receipt Date: 20221008
  Transmission Date: 20230113
  Serious: Yes (Hospitalization)
  Sender: FDA-Public Use
  Company Number: DE-ADRED-08348-01

PATIENT
  Age: 58 Year
  Sex: Male
  Weight: 68 kg

DRUGS (14)
  1. LOPERAMIDE [Suspect]
     Active Substance: LOPERAMIDE
     Indication: Product used for unknown indication
     Dosage: 2 MG, AS NEEDED
     Route: 065
  2. CISPLATIN [Suspect]
     Active Substance: CISPLATIN
     Indication: Product used for unknown indication
     Route: 065
  3. Cyanocobalamin (Vitamin B12)/Folic Acid/Potassium Chloride/Magnesium A [Concomitant]
     Indication: Product used for unknown indication
     Dosage: FOUR TO SIX A DAY , CYANOCOBALAMIN (VITAMIN B12)/FOLSAURE/KALIUMCHLORID/MAGNESIUMASPARTAT/MAGNESIUMO
  4. SIMVASTATIN [Concomitant]
     Active Substance: SIMVASTATIN
     Indication: Product used for unknown indication
     Dosage: 40 MILLIGRAM DAILY; 40 MG, 0-0-0-1
  5. Panzytrat [Concomitant]
     Indication: Product used for unknown indication
     Dosage: 3 DOSAGE FORMS DAILY; 25000 IE, 1-1-1-0 , 25000E
  6. NEBIVOLOL [Concomitant]
     Active Substance: NEBIVOLOL
     Indication: Product used for unknown indication
     Dosage: 5 MILLIGRAM DAILY; 5 MG, 1-0-0-0
  7. TELMISARTAN [Concomitant]
     Active Substance: TELMISARTAN
     Indication: Product used for unknown indication
     Dosage: 80 MILLIGRAM DAILY; 80 MG, 1-0-0-0
  8. CHOLECALCIFEROL [Concomitant]
     Active Substance: CHOLECALCIFEROL
     Indication: Product used for unknown indication
     Dosage: 1 DOSAGE FORMS DAILY; 4000 IE, 1-0-0-0
  9. METAMIZOLE [Concomitant]
     Active Substance: METAMIZOLE
     Indication: Product used for unknown indication
     Dosage: 500 MG, IF NEEDED
  10. INNOHEP [Concomitant]
     Active Substance: TINZAPARIN SODIUM
     Indication: Product used for unknown indication
     Dosage: 12000 IU, IN THE MORNING EXCEPT ON CHEMOTHERAPY DAYS  , 12000I.E.
  11. TESTOSTERONE [Concomitant]
     Active Substance: TESTOSTERONE
     Indication: Product used for unknown indication
     Dosage: 1 DOSAGE FORMS DAILY; 1-0-0-0 , FORM STRENGTH : 62,5MG
  12. AMLODIPINE BESYLATE [Concomitant]
     Active Substance: AMLODIPINE BESYLATE
     Indication: Product used for unknown indication
     Dosage: 1 DOSAGE FORMS DAILY; 5 MG, 0.5-0-0.5-0
  13. TOUJEO [Concomitant]
     Active Substance: INSULIN GLARGINE
     Indication: Product used for unknown indication
     Dosage: 18 DOSAGE FORMS DAILY; 300 IE/ML, 0-0-0-18 ,450E. 300E./ML PEN
  14. INSULIN GLULISINE [Concomitant]
     Active Substance: INSULIN GLULISINE
     Indication: Product used for unknown indication
     Dosage: DEPENDING ON THE VALUE

REACTIONS (3)
  - Dizziness [Unknown]
  - Dyspnoea [Unknown]
  - Pallor [Unknown]
